FAERS Safety Report 8628429 (Version 2)
Quarter: 2012Q4

REPORT INFORMATION
  Report Type: 
  Country: US (occurrence: US)
  Receive Date: 20120621
  Receipt Date: 20120907
  Transmission Date: 20130627
  Serious: Yes (Other)
  Sender: FDA-Public Use
  Company Number: US-UCBSA-059812

PATIENT
  Age: 52 Year
  Sex: Female

DRUGS (5)
  1. CIMZIA [Suspect]
     Indication: CROHN^S DISEASE
     Route: 058
     Dates: start: 20090105, end: 20120604
  2. PENTASA [Concomitant]
  3. LOMOTIL [Concomitant]
  4. IMODIUM [Concomitant]
  5. VIT D [Concomitant]

REACTIONS (1)
  - Urticaria [Recovering/Resolving]
